FAERS Safety Report 9125156 (Version 2)
Quarter: 2013Q1

REPORT INFORMATION
  Report Type: Spontaneous
  Country: US (occurrence: US)
  Receive Date: 20130227
  Receipt Date: 20130307
  Transmission Date: 20140127
  Serious: No
  Sender: FDA-Public Use
  Company Number: US-JNJFOC-20130214484

PATIENT
  Age: 43 Year
  Sex: Female
  Weight: 69.4 kg

DRUGS (5)
  1. SUDAFED 12 HOUR [Suspect]
     Indication: NASAL CONGESTION
     Route: 048
     Dates: start: 20130220
  2. SUDAFED 12 HOUR [Suspect]
     Indication: SINUS HEADACHE
     Route: 048
     Dates: start: 20130220
  3. AN UNKNOWN MEDICATION [Suspect]
     Indication: NASOPHARYNGITIS
     Route: 065
  4. MUCINEX D [Concomitant]
     Indication: PRODUCT USED FOR UNKNOWN INDICATION
     Dosage: 1 EVERY 12
     Route: 065
  5. MUCINEX DM [Concomitant]
     Indication: PRODUCT USED FOR UNKNOWN INDICATION
     Dosage: 1 EVERY 4
     Route: 065

REACTIONS (1)
  - Restless legs syndrome [Recovered/Resolved]
